FAERS Safety Report 26070337 (Version 1)
Quarter: 2025Q4

REPORT INFORMATION
  Report Type: Spontaneous
  Country: US (occurrence: US)
  Receive Date: 20251120
  Receipt Date: 20251120
  Transmission Date: 20260118
  Serious: Yes (Other)
  Sender: PFIZER
  Company Number: US-PFIZER INC-202500223852

PATIENT
  Sex: Female

DRUGS (1)
  1. FLUCONAZOLE [Suspect]
     Active Substance: FLUCONAZOLE
     Dosage: UNK UNK, DAILY

REACTIONS (5)
  - Liver injury [Unknown]
  - Hepatic pain [Unknown]
  - Liver disorder [Unknown]
  - Drug ineffective [Unknown]
  - Oropharyngeal pain [Not Recovered/Not Resolved]
